FAERS Safety Report 4416697-6 (Version None)
Quarter: 2004Q3

REPORT INFORMATION
  Report Type: 
  Country: None (occurrence: None)
  Receive Date: 20040805
  Receipt Date: 20040531
  Transmission Date: 20050211
  Serious: Yes (Death, Other)
  Sender: FDA-Public Use
  Company Number: JP-MERCK-0406USA00381

PATIENT
  Age: 67 Year
  Sex: Male

DRUGS (21)
  1. AMINOPHYLLINE [Concomitant]
     Route: 042
     Dates: start: 20040522, end: 20040529
  2. BISOLVON [Concomitant]
     Route: 042
     Dates: start: 20040514, end: 20040520
  3. TIENAM [Concomitant]
     Route: 042
     Dates: start: 20040507, end: 20040517
  4. CIPROXAN [Concomitant]
     Route: 042
     Dates: start: 20040518, end: 20040526
  5. DILTIAZEM HYDROCHLORIDE [Concomitant]
     Route: 042
     Dates: start: 20040515, end: 20040529
  6. PEPCID [Suspect]
     Route: 042
     Dates: start: 20040507, end: 20040514
  7. PEPCID [Suspect]
     Route: 042
     Dates: start: 20040522, end: 20040529
  8. GENTACIN [Suspect]
     Indication: PNEUMONIA
     Route: 042
     Dates: start: 20040515, end: 20040529
  9. PENFILL R [Concomitant]
     Route: 058
     Dates: start: 20040515, end: 20040529
  10. DORMICUM (MIDAZOLAM) [Concomitant]
     Route: 042
     Dates: start: 20040506, end: 20040525
  11. NITROGLYCERIN [Concomitant]
     Route: 042
     Dates: start: 20040507, end: 20040520
  12. NITRODERM [Concomitant]
     Route: 061
     Dates: start: 20040516, end: 20040529
  13. OMEPRAL [Concomitant]
     Route: 042
     Dates: start: 20040515, end: 20040529
  14. PILSICAINIDE HYDROCHLORIDE [Suspect]
     Indication: ARRHYTHMIA
     Route: 048
     Dates: start: 20040522, end: 20040529
  15. ELASPOL [Concomitant]
     Route: 042
     Dates: start: 20040515, end: 20040520
  16. HOKUNALIN [Concomitant]
     Route: 061
     Dates: start: 20040508, end: 20040529
  17. VANCOMYCIN [Concomitant]
     Route: 048
     Dates: start: 20040527, end: 20040529
  18. VECURONIUM BROMIDE [Concomitant]
     Route: 042
     Dates: start: 20040506, end: 20040520
  19. VASOLAN [Concomitant]
     Route: 042
     Dates: start: 20040514, end: 20040521
  20. VASOLAN [Concomitant]
     Route: 048
     Dates: start: 20040523, end: 20040529
  21. WARFARIN POTASSIUM [Concomitant]
     Route: 048
     Dates: start: 20040523, end: 20040529

REACTIONS (9)
  - BLOOD PRESSURE DECREASED [None]
  - DIARRHOEA [None]
  - DYSPNOEA [None]
  - LACTIC ACIDOSIS [None]
  - PANCYTOPENIA [None]
  - PYREXIA [None]
  - SEPSIS [None]
  - SHOCK [None]
  - SPUTUM RETENTION [None]
